FAERS Safety Report 5079178-5 (Version None)
Quarter: 2006Q3

REPORT INFORMATION
  Report Type: 
  Country: None (occurrence: None)
  Receive Date: 20060814
  Receipt Date: 20060807
  Transmission Date: 20061208
  Serious: Yes (Hospitalization)
  Sender: FDA-Public Use
  Company Number: J200602815

PATIENT
  Sex: Male

DRUGS (1)
  1. SAWACILLIN [Suspect]
     Indication: NASOPHARYNGITIS
     Route: 048

REACTIONS (3)
  - PNEUMONIA [None]
  - PYREXIA [None]
  - RASH [None]
